FAERS Safety Report 17095587 (Version 2)
Quarter: 2020Q3

REPORT INFORMATION
  Report Type: Spontaneous
  Country: VE (occurrence: VE)
  Receive Date: 20191201
  Receipt Date: 20200728
  Transmission Date: 20201102
  Serious: Yes (Hospitalization, Other)
  Sender: FDA-Public Use
  Company Number: NVSC2019VE025075

PATIENT
  Age: 10 Year
  Sex: Male
  Weight: 36.7 kg

DRUGS (6)
  1. METHOTREXATE. [Suspect]
     Active Substance: METHOTREXATE
     Indication: ACUTE LYMPHOCYTIC LEUKAEMIA
     Dosage: 36 MG, QW
     Route: 030
     Dates: start: 201901
  2. MERCAPTOPURINE. [Concomitant]
     Active Substance: MERCAPTOPURINE
     Indication: ACUTE LYMPHOCYTIC LEUKAEMIA
     Dosage: 62.5 MG, DAILY FOR 14 DAYS
     Route: 048
     Dates: start: 201901
  3. GLIVEC [Suspect]
     Active Substance: IMATINIB MESYLATE
     Indication: ACUTE LYMPHOCYTIC LEUKAEMIA
     Dosage: 400 MG, QD
     Route: 048
     Dates: start: 201910
  4. CLONAZEPAM. [Concomitant]
     Active Substance: CLONAZEPAM
     Indication: HYPERKINESIA
     Dosage: 0.5 MG, QD
     Route: 048
     Dates: start: 2015
  5. DEXAMETHASONE. [Concomitant]
     Active Substance: DEXAMETHASONE
     Indication: ACUTE LYMPHOCYTIC LEUKAEMIA
     Dosage: 7.5 MG, DAILY FOR 5 DAYS EVERY 21 DAYS
     Route: 048
     Dates: start: 201901
  6. VINCRISTINE [Concomitant]
     Active Substance: VINCRISTINE
     Indication: ACUTE LYMPHOCYTIC LEUKAEMIA
     Dosage: 1.5 OT, EVERY 21 DAYS
     Route: 042
     Dates: start: 201901

REACTIONS (16)
  - White blood cell count decreased [Unknown]
  - Stomatitis [Unknown]
  - Feeling abnormal [Recovered/Resolved]
  - Diarrhoea [Recovered/Resolved]
  - Leukopenia [Unknown]
  - Haematocrit decreased [Unknown]
  - Eating disorder [Unknown]
  - Hiatus hernia [Recovering/Resolving]
  - Toxicity to various agents [Unknown]
  - Neutropenia [Unknown]
  - Mucosal inflammation [Unknown]
  - Aphthous ulcer [Unknown]
  - Pyrexia [Recovered/Resolved]
  - Febrile neutropenia [Recovered/Resolved]
  - Platelet count decreased [Unknown]
  - Oral discomfort [Unknown]

NARRATIVE: CASE EVENT DATE: 20191030
